FAERS Safety Report 9365742 (Version 2)
Quarter: 2013Q3

REPORT INFORMATION
  Report Type: Spontaneous
  Country: US (occurrence: US)
  Receive Date: 20130625
  Receipt Date: 20130730
  Transmission Date: 20140515
  Serious: No
  Sender: FDA-Public Use
  Company Number: US-009507513-1306USA007790

PATIENT
  Age: 25 Year
  Sex: Female
  Weight: 73.92 kg

DRUGS (1)
  1. NEXPLANON [Suspect]
     Indication: CONTRACEPTION
     Dosage: 68MG ROD ONCE EVERY 3 YEARS
     Route: 059
     Dates: start: 20121008

REACTIONS (2)
  - Urinary tract infection [Not Recovered/Not Resolved]
  - Device breakage [Not Recovered/Not Resolved]
